FAERS Safety Report 13508463 (Version 1)
Quarter: 2017Q2

REPORT INFORMATION
  Report Type: Spontaneous
  Country: KR (occurrence: KR)
  Receive Date: 20170503
  Receipt Date: 20170503
  Transmission Date: 20170830
  Serious: Yes (Other)
  Sender: FDA-Public Use
  Company Number: KR-PFIZER INC-2017181871

PATIENT
  Age: 11 Year
  Sex: Male
  Weight: 53 kg

DRUGS (7)
  1. ROCURONIUM BROMIDE. [Suspect]
     Active Substance: ROCURONIUM BROMIDE
     Dosage: 10 MG, UNK
     Route: 042
  2. PENTOTHAL [Concomitant]
     Active Substance: THIOPENTAL SODIUM
     Indication: INDUCTION OF ANAESTHESIA
     Dosage: 5 MG/KG, UNK
  3. ROCURONIUM BROMIDE. [Suspect]
     Active Substance: ROCURONIUM BROMIDE
     Indication: ANAESTHESIA
     Dosage: 0.6 MG/KG, UNK
     Route: 040
  4. GLYCOPYRROLATE. [Concomitant]
     Active Substance: GLYCOPYRROLATE
     Indication: PREMEDICATION
     Dosage: 0.2 MG, UNK
     Route: 030
  5. MIDAZOLAM [Concomitant]
     Active Substance: MIDAZOLAM HYDROCHLORIDE
     Indication: INDUCTION OF ANAESTHESIA
     Dosage: 5 MG, UNK
  6. PROPOFOL. [Concomitant]
     Active Substance: PROPOFOL
     Dosage: INTRAVENOUS (IV) INFUSION OF 250MG/KG/MIN
     Route: 041
  7. REMIFENTANIL [Concomitant]
     Active Substance: REMIFENTANIL
     Dosage: 0.3MG/KG/MIN
     Route: 041

REACTIONS (1)
  - Neuromuscular block prolonged [Recovered/Resolved]
